FAERS Safety Report 17443210 (Version 2)
Quarter: 2020Q1

REPORT INFORMATION
  Report Type: Report from Study
  Country: None (occurrence: CH)
  Receive Date: 20200221
  Receipt Date: 20200311
  Transmission Date: 20200409
  Serious: Yes (Hospitalization)
  Sender: FDA-Public Use
  Company Number: CH-ABBVIE-20K-151-3280931-00

PATIENT
  Age: 76 Year
  Sex: Male

DRUGS (3)
  1. DUODOPA [Suspect]
     Active Substance: CARBIDOPA\LEVODOPA
     Dosage: MD: 4.8 ML/H, CR: 2.8 ML/H, CONTINUOUS NIGHT RATE 0.0 ML/H, ED: 1.0 ML?16 H THERAPY
     Route: 050
     Dates: start: 20190516
  2. DUODOPA [Suspect]
     Active Substance: CARBIDOPA\LEVODOPA
     Dosage: MD: 4.8 ML/H, CR: 2.5 ML/H, CONTINUOUS NIGHT RATE 0.0 ML/H, ED: 1.0 ML?16 H THERAPY
     Route: 050
     Dates: start: 20181213, end: 20190516
  3. DUODOPA [Suspect]
     Active Substance: CARBIDOPA\LEVODOPA
     Indication: PARKINSON^S DISEASE
     Route: 050
     Dates: start: 20180806, end: 20181213

REACTIONS (2)
  - Seizure [Recovered/Resolved]
  - Device issue [Recovered/Resolved]

NARRATIVE: CASE EVENT DATE: 20200215
